FAERS Safety Report 6137674-3 (Version None)
Quarter: 2009Q1

REPORT INFORMATION
  Report Type: 
  Country: None (occurrence: None)
  Receive Date: 20090331
  Receipt Date: 20090323
  Transmission Date: 20090719
  Serious: Yes (Other)
  Sender: FDA-Public Use
  Company Number: PHHO2009DE04000

PATIENT
  Sex: Female
  Weight: 72 kg

DRUGS (4)
  1. TASIGNA [Suspect]
     Indication: GASTROINTESTINAL STROMAL TUMOUR
     Dosage: 800 MG, QD
     Route: 048
     Dates: start: 20090120
  2. PRAVASTATIN [Concomitant]
     Dosage: UNK
     Dates: start: 20060601
  3. METOPROLOL [Concomitant]
     Dosage: UNK
     Dates: start: 20060601
  4. ALLOPURINOL [Concomitant]
     Dosage: UNK
     Dates: start: 20060101

REACTIONS (1)
  - ELECTROCARDIOGRAM QT PROLONGED [None]
